FAERS Safety Report 7991747-9 (Version None)
Quarter: 2011Q4

REPORT INFORMATION
  Report Type: 
  Country: None (occurrence: None)
  Receive Date: 20111219
  Receipt Date: 20111214
  Transmission Date: 20120403
  Serious: Yes (Death, Other)
  Sender: FDA-Public Use
  Company Number: PHHY2011EC109499

PATIENT
  Sex: Female

DRUGS (2)
  1. DIOVAN HCT [Suspect]
     Indication: HYPERTENSION
     Dosage: 1 DF, QD
     Route: 048
     Dates: start: 20020807
  2. ALENDRONATE SODIUM [Concomitant]
     Dosage: UNK UKN, UNK

REACTIONS (4)
  - JAUNDICE [None]
  - ANGER [None]
  - DISEASE COMPLICATION [None]
  - VOMITING [None]
